FAERS Safety Report 4479552-1 (Version None)
Quarter: 2004Q4

REPORT INFORMATION
  Report Type: 
  Country: None (occurrence: None)
  Receive Date: 20041015
  Receipt Date: 20041006
  Transmission Date: 20050328
  Serious: Yes (Hospitalization)
  Sender: FDA-Public Use
  Company Number: 04H-163-0276921-00

PATIENT
  Age: 62 Year
  Sex: Female
  Weight: 65.4 kg

DRUGS (6)
  1. METHYLPREDNISOLONE SODIUM SUCCINATE [Suspect]
  2. ETANEREPT [Suspect]
     Indication: RHEUMATOID ARTHRITIS
     Dosage: 25 MG, TWICE A WEEK, SUBCUTANEOUS
     Route: 058
     Dates: start: 20021220, end: 20030611
  3. METHOTREXATE [Suspect]
     Dates: start: 20020111, end: 20030611
  4. HYDROXYCHLOROQUINE PHOSPHATE [Concomitant]
  5. LEVOTHYROXINE SODIUM [Concomitant]
  6. FOLIC ACID [Concomitant]

REACTIONS (3)
  - ARTHRITIS BACTERIAL [None]
  - DEEP VEIN THROMBOSIS [None]
  - MYOCARDIAL INFARCTION [None]
